FAERS Safety Report 8313461-2 (Version None)
Quarter: 2012Q2

REPORT INFORMATION
  Report Type: 
  Country: None (occurrence: None)
  Receive Date: 20120424
  Receipt Date: 20120413
  Transmission Date: 20120825
  Serious: Yes (Life-Threatening, Hospitalization)
  Sender: FDA-Public Use
  Company Number: 1258214

PATIENT
  Age: 94 Year
  Sex: Male

DRUGS (18)
  1. FLUDROCORTISONE ACETATE [Concomitant]
  2. LOPERAMIDE [Concomitant]
  3. LACTULOSE [Concomitant]
  4. ENOXAPARIN [Concomitant]
  5. (PHOSPHATE SANDOZ) [Concomitant]
  6. OMEPRAZOLE [Concomitant]
  7. FUROSEMIDE [Concomitant]
  8. IPRATROPIUM BROMIDE [Concomitant]
  9. PHENYTOIN [Concomitant]
  10. (CALCICHEW-D3) [Concomitant]
  11. PENICILLIN G [Concomitant]
  12. CLARITHROMYCIN [Concomitant]
  13. HYDROCORTISONE [Concomitant]
  14. LANSOPRAZOLE [Concomitant]
  15. ALBUTEROL [Concomitant]
  16. ACETAMINOPHEN [Concomitant]
  17. (PIPERACILLIN AND TAZOBACTAM) [Suspect]
     Indication: LOWER RESPIRATORY TRACT INFECTION
     Dosage: 4.5 G GRAM(S), 8 HOUR, INTRAVENOUS (NOT OTHERWISE SPECIFIED)
     Route: 042
     Dates: start: 20120320, end: 20120326
  18. GENTAMICIN [Concomitant]

REACTIONS (4)
  - LEUKOPENIA [None]
  - NEUTROPENIA [None]
  - ANTICONVULSANT DRUG LEVEL DECREASED [None]
  - PLATELET COUNT DECREASED [None]
